FAERS Safety Report 22056979 (Version 3)
Quarter: 2023Q2

REPORT INFORMATION
  Report Type: Spontaneous
  Country: GB (occurrence: GB)
  Receive Date: 20230303
  Receipt Date: 20230628
  Transmission Date: 20230722
  Serious: Yes (Hospitalization, Other)
  Sender: FDA-Public Use
  Company Number: GB-NOVOPROD-1027963

PATIENT
  Age: 31 Year
  Sex: Female
  Weight: 130 kg

DRUGS (2)
  1. SAXENDA [Suspect]
     Active Substance: LIRAGLUTIDE
     Dosage: INCREASED (DOSAGE AND UNITS NOT REPORTED)
     Dates: end: 202201
  2. SAXENDA [Suspect]
     Active Substance: LIRAGLUTIDE
     Indication: Weight control
     Dosage: UNK
     Dates: start: 202201

REACTIONS (2)
  - Seizure [Unknown]
  - Amnesia [Unknown]
